FAERS Safety Report 23565990 (Version 1)
Quarter: 2024Q1

REPORT INFORMATION
  Report Type: Report from Study
  Country: US (occurrence: US)
  Receive Date: 20240226
  Receipt Date: 20240226
  Transmission Date: 20240410
  Serious: Yes (Other)
  Sender: FDA-Public Use
  Company Number: US-TAKEDA-2023TUS119647

PATIENT
  Age: 52 Year
  Sex: Female

DRUGS (2)
  1. FRUQUINTINIB [Suspect]
     Active Substance: FRUQUINTINIB
     Indication: Colon cancer
     Dosage: 5 MILLIGRAM, QD
     Route: 048
     Dates: start: 20231206
  2. FRUQUINTINIB [Suspect]
     Active Substance: FRUQUINTINIB
     Dosage: 5 MILLIGRAM, QD
     Route: 048
     Dates: start: 20231224, end: 20240126

REACTIONS (12)
  - Contusion [Recovering/Resolving]
  - COVID-19 [Unknown]
  - Cholecystitis infective [Unknown]
  - Urinary tract infection [Unknown]
  - Platelet count decreased [Unknown]
  - Feeling abnormal [Not Recovered/Not Resolved]
  - Blister [Recovering/Resolving]
  - Gait disturbance [Recovering/Resolving]
  - Pain [Recovering/Resolving]
  - Vomiting [Recovered/Resolved]
  - Throat irritation [Unknown]
  - Diarrhoea [Recovered/Resolved]

NARRATIVE: CASE EVENT DATE: 20231207
